FAERS Safety Report 7924041 (Version 5)
Quarter: 2015Q1

REPORT INFORMATION
  Report Type: Spontaneous
  Country: US (occurrence: US)
  Receive Date: 20110502
  Receipt Date: 20150227
  Transmission Date: 20150721
  Serious: Yes (Hospitalization)
  Sender: FDA-Public Use
  Company Number: US-BAYER-2011-032319

PATIENT
  Age: 47 Year
  Sex: Female
  Weight: 76 kg

DRUGS (4)
  1. CLARINEX [Concomitant]
     Active Substance: DESLORATADINE
     Indication: RASH
     Dosage: UNK
     Dates: start: 20060911
  2. YAZ [Suspect]
     Active Substance: DROSPIRENONE\ETHINYL ESTRADIOL
     Indication: MENSTRUATION IRREGULAR
     Dosage: UNK
     Dates: start: 20060911, end: 20061009
  3. YAZ [Suspect]
     Active Substance: DROSPIRENONE\ETHINYL ESTRADIOL
     Indication: MENOPAUSE
     Dosage: UNK
  4. ESTRACE [Concomitant]
     Active Substance: ESTRADIOL
     Indication: MENOPAUSAL SYMPTOMS
     Dosage: UNK
     Dates: start: 201405

REACTIONS (17)
  - Muscular weakness [Recovered/Resolved]
  - Vision blurred [Recovered/Resolved]
  - Speech disorder [Recovered/Resolved]
  - Frustration [None]
  - Dysarthria [Recovered/Resolved]
  - Agraphia [Recovered/Resolved]
  - Anxiety [None]
  - Aphasia [Recovered/Resolved]
  - Psychiatric symptom [None]
  - Activities of daily living impaired [Recovered/Resolved]
  - Disturbance in attention [Recovered/Resolved]
  - Product use issue [None]
  - Thrombotic stroke [Recovered/Resolved]
  - VIIth nerve paralysis [Recovered/Resolved]
  - Memory impairment [Recovered/Resolved]
  - Emotional distress [None]
  - Injury [Recovered/Resolved]

NARRATIVE: CASE EVENT DATE: 20061009
